FAERS Safety Report 11054866 (Version 2)
Quarter: 2015Q2

REPORT INFORMATION
  Report Type: Spontaneous
  Country: JP (occurrence: JP)
  Receive Date: 20150422
  Receipt Date: 20150604
  Transmission Date: 20150821
  Serious: Yes (Other)
  Sender: FDA-Public Use
  Company Number: JP-SA-2015SA049453

PATIENT
  Age: 80 Year
  Sex: Male

DRUGS (13)
  1. BUSCOPAN [Concomitant]
     Active Substance: BUTYLSCOPOLAMINE BROMIDE
     Dosage: BUSCOPAN TABLET 10 MG (STRIP PACKAGE)
     Route: 048
  2. PLAVIX [Suspect]
     Active Substance: CLOPIDOGREL BISULFATE
     Route: 048
     Dates: start: 20140210
  3. LANSOPRAZOLE. [Concomitant]
     Active Substance: LANSOPRAZOLE
     Dosage: LANSOPRAZOLE OD TABLET 30 MG ^SAWAI^
     Route: 048
  4. CAMOSTAT MESILATE [Concomitant]
     Active Substance: CAMOSTAT MESYLATE
     Dosage: CAMOSTAT MESILATE TABLET 100 MG ^NICHI-IKO^
     Route: 048
  5. DEPAS [Concomitant]
     Active Substance: ETIZOLAM
     Dosage: DEPAS TABLET 1 MG (STRIP PACKAGE)
     Route: 048
  6. ETHYL ICOSAPENTATE [Concomitant]
     Active Substance: ETHYL ICOSAPENTATE
     Route: 048
  7. POLAPREZINC [Concomitant]
     Active Substance: POLAPREZINC
     Dosage: POLAPREZINC OD TABLET 75 MG ^SAWAI^ AFTER BREAKFAST AND DINNER
     Route: 048
  8. NIKORANMART [Concomitant]
     Active Substance: NICORANDIL
     Dosage: FREQUENCY: AFTER EACH MEAL THRICE DAILY
     Route: 048
  9. PRORNER [Concomitant]
     Active Substance: BERAPROST SODIUM
     Dosage: STRENGTH: 20 MCG
     Route: 048
  10. TANATRIL [Concomitant]
     Active Substance: IMIDAPRIL
     Dosage: TANATRIL TABLET 10 MG (ORIGINAL DRUG)
     Route: 048
  11. METHYCOBAL [Concomitant]
     Active Substance: METHYLCOBALAMIN
     Dosage: METHYCOBAL TABLET 500 MCG
     Route: 048
  12. STROCAIN [Concomitant]
     Active Substance: OXETHAZAINE
     Route: 048
  13. FAMOTIDINE D [Concomitant]
     Active Substance: FAMOTIDINE
     Indication: ABDOMINAL PAIN UPPER
     Dosage: FAMOTIDINE D TABLET 20 MG ^SAWAI^ (STRIP PACKAGE), FREQUENCY: AT THE TIME OF GASTRALGIA.
     Route: 048

REACTIONS (1)
  - Loss of consciousness [Unknown]
